FAERS Safety Report 8637688 (Version 4)
Quarter: 2013Q2

REPORT INFORMATION
  Report Type: Spontaneous
  Country: US (occurrence: US)
  Receive Date: 20120627
  Receipt Date: 20130516
  Transmission Date: 20140414
  Serious: Yes (Death, Other)
  Sender: FDA-Public Use
  Company Number: US-PFIZER INC-2012152003

PATIENT
  Age: 52 Year
  Sex: Female

DRUGS (5)
  1. ZITHROMAX [Suspect]
     Dosage: UNK
     Route: 048
     Dates: start: 20111121
  2. ZITHROMAX [Suspect]
     Dosage: UNK
     Route: 048
     Dates: start: 20120416
  3. AZITHROMYCIN [Suspect]
     Dosage: UNK
     Route: 048
     Dates: start: 20120416
  4. METOPROLOL [Concomitant]
     Dosage: ONE TABLET TWO TIMES A DAY
     Route: 048
  5. PAXIL [Concomitant]
     Dosage: ONE TABLET  EVERY DAY
     Route: 048

REACTIONS (1)
  - Sudden cardiac death [Fatal]
